FAERS Safety Report 4425820-9 (Version None)
Quarter: 2004Q3

REPORT INFORMATION
  Report Type: 
  Country: None (occurrence: None)
  Receive Date: 20040810
  Receipt Date: 20040727
  Transmission Date: 20050211
  Serious: Yes (Hospitalization)
  Sender: FDA-Public Use
  Company Number: F01200402198

PATIENT
  Age: 51 Year
  Sex: Male

DRUGS (3)
  1. (OXALIPLATIN)-SOLUTION [Suspect]
     Indication: COLON CANCER
     Dosage: INTRAVENOUS NOS
     Route: 042
     Dates: start: 20040707, end: 20040707
  2. CAPECITABINE [Suspect]
     Indication: COLON CANCER
     Dosage: ORAL
     Route: 048
     Dates: start: 20040707, end: 20040708
  3. ERLOTINIB [Suspect]
     Indication: COLON CANCER
     Dosage: ORAL
     Route: 048
     Dates: start: 20040707, end: 20040708

REACTIONS (1)
  - MYOCARDIAL INFARCTION [None]
